FAERS Safety Report 19430316 (Version 1)
Quarter: 2021Q2

REPORT INFORMATION
  Report Type: Spontaneous
  Country: US (occurrence: US)
  Receive Date: 20210617
  Receipt Date: 20210617
  Transmission Date: 20210717
  Serious: No
  Sender: FDA-Public Use
  Company Number: US-ACCORD-193998

PATIENT
  Sex: Male
  Weight: 65.77 kg

DRUGS (3)
  1. MAGNESIUM CITRATE. [Concomitant]
     Active Substance: MAGNESIUM CITRATE
     Indication: CONSTIPATION
  2. BIOTIN [Concomitant]
     Active Substance: BIOTIN
  3. CAPECITABINE ACCORD [Suspect]
     Active Substance: CAPECITABINE
     Indication: PANCREATIC CARCINOMA
     Dosage: 2 TIMES IN A DAY
     Route: 048
     Dates: start: 20200722

REACTIONS (4)
  - Nausea [Recovered/Resolved]
  - Body height decreased [Unknown]
  - Constipation [Unknown]
  - Off label use [Unknown]
